FAERS Safety Report 6519953-0 (Version None)
Quarter: 2009Q4

REPORT INFORMATION
  Report Type: 
  Country: None (occurrence: None)
  Receive Date: 20091229
  Receipt Date: 20091218
  Transmission Date: 20100525
  Serious: Yes (Other)
  Sender: FDA-Public Use
  Company Number: US-PFIZER INC-2009313072

PATIENT
  Sex: Female
  Weight: 68.02 kg

DRUGS (3)
  1. ZITHROMAX [Suspect]
     Indication: TOOTH INFECTION
     Dosage: UNK
  2. ATENOLOL [Suspect]
     Dosage: 25 MG
  3. AMLODIPINE BESYLATE [Suspect]
     Indication: BLOOD PRESSURE
     Dosage: 5 MG, UNK
     Route: 048
     Dates: start: 20090101

REACTIONS (4)
  - BLOOD PRESSURE INCREASED [None]
  - DYSSTASIA [None]
  - EYE DISORDER [None]
  - PERIPHERAL VASCULAR DISORDER [None]
